FAERS Safety Report 4442096-7 (Version None)
Quarter: 2004Q3

REPORT INFORMATION
  Report Type: 
  Country: None (occurrence: None)
  Receive Date: 20040903
  Receipt Date: 20040322
  Transmission Date: 20050211
  Serious: Yes (Other)
  Sender: FDA-Public Use
  Company Number: 2004UW05504

PATIENT
  Age: 74 Year
  Sex: Female
  Weight: 57.1532 kg

DRUGS (7)
  1. CRESTOR [Suspect]
     Indication: HYPERCHOLESTEROLAEMIA
     Dosage: 10 MG QD PO
     Route: 048
     Dates: start: 20040319
  2. VERAPAMIL [Concomitant]
  3. ATENOLOL [Concomitant]
  4. LOVACOL [Concomitant]
  5. XANAX [Concomitant]
  6. AMBIEN [Concomitant]
  7. ANTIVERT [Concomitant]

REACTIONS (3)
  - ABDOMINAL DISTENSION [None]
  - ABDOMINAL PAIN [None]
  - DIARRHOEA HAEMORRHAGIC [None]
